FAERS Safety Report 13271152 (Version 1)
Quarter: 2017Q1

REPORT INFORMATION
  Report Type: Report from Study
  Country: US (occurrence: US)
  Receive Date: 20170226
  Receipt Date: 20170226
  Transmission Date: 20170428
  Serious: Yes (Other)
  Sender: FDA-Public Use
  Company Number: US-B.I. PHARMACEUTICALS,INC./RIDGEFIELD-2017-BI-008968

PATIENT
  Sex: Female

DRUGS (1)
  1. OFEV [Suspect]
     Active Substance: NINTEDANIB
     Indication: BREAST CANCER FEMALE
     Dosage: DAILY DOSAGE: USE AS DIRECTED BY PHYSICIAN
     Route: 048
     Dates: start: 20170109

REACTIONS (3)
  - Lethargy [Unknown]
  - Fatigue [Unknown]
  - Dysphonia [Unknown]
